FAERS Safety Report 22624499 (Version 1)
Quarter: 2023Q2

REPORT INFORMATION
  Report Type: Spontaneous
  Country: CA (occurrence: CA)
  Receive Date: 20230621
  Receipt Date: 20230621
  Transmission Date: 20230721
  Serious: Yes (Other)
  Sender: FDA-Public Use
  Company Number: CA-ORGANON-O2306CAN002057

PATIENT
  Age: 58 Year
  Sex: Male

DRUGS (12)
  1. PROSCAR [Suspect]
     Active Substance: FINASTERIDE
     Indication: Product used for unknown indication
     Dosage: 5 MILLIGRAM,1 EVERY 1 DAYS (QD), DOSAGE FORM : TABLET
     Route: 048
  2. ARIPIPRAZOLE [Suspect]
     Active Substance: ARIPIPRAZOLE
     Indication: Product used for unknown indication
     Dosage: 2 MILLIGRAM, 1 EVERY 1 DAYS (QD), DOSAGE FORM: NOT SPECIFIED
     Route: 048
  3. BUPROPION [Suspect]
     Active Substance: BUPROPION
     Indication: Product used for unknown indication
     Dosage: 300 MILLIGRAM, 1 EVERY 1 DAYS (QD)
     Route: 048
  4. CELECOXIB [Suspect]
     Active Substance: CELECOXIB
     Indication: Product used for unknown indication
     Dosage: 200 MILLIGRAM, 2 EVERY 1 DAYS (BID)
     Route: 048
  5. CLONAZEPAM [Suspect]
     Active Substance: CLONAZEPAM
     Indication: Product used for unknown indication
     Dosage: 4 MILLIGRAM, 1 EVERY 1 DAYS (QD)
     Route: 048
  6. LEFLUNOMIDE [Suspect]
     Active Substance: LEFLUNOMIDE
     Indication: Product used for unknown indication
     Dosage: 20 MILLIGRAM,1 EVERY 1 DAYS (QD), DOSAGE FORM: NOT SPECIFIED
     Route: 048
  7. CHOLECALCIFEROL [Concomitant]
     Active Substance: CHOLECALCIFEROL
     Dosage: UNK, DOSAGE FORM: NOT SPECIFIED
     Route: 065
  8. DEXILANT [Concomitant]
     Active Substance: DEXLANSOPRAZOLE
     Dosage: UNK
     Route: 065
  9. DULOXETINE [Concomitant]
     Active Substance: DULOXETINE
     Dosage: UNK
     Route: 048
  10. ENBREL [Concomitant]
     Active Substance: ETANERCEPT
     Dosage: UNK
     Route: 065
  11. LEVOTHYROXINE SODIUM [Concomitant]
     Active Substance: LEVOTHYROXINE SODIUM
     Dosage: UNK, DOSAGE FORM: NOT SPECIFIED
     Route: 065
  12. METHOTREXATE [Concomitant]
     Active Substance: METHOTREXATE
     Dosage: UNK, DOSAGE FORM: NOT SPECIFIED
     Route: 037

REACTIONS (5)
  - Arthralgia [Unknown]
  - Drug ineffective [Unknown]
  - Fatigue [Unknown]
  - Psoriatic arthropathy [Unknown]
  - Synovitis [Unknown]
